FAERS Safety Report 24437633 (Version 1)
Quarter: 2024Q4

REPORT INFORMATION
  Report Type: Spontaneous
  Country: US (occurrence: None)
  Receive Date: 20241011
  Receipt Date: 20241011
  Transmission Date: 20250115
  Serious: No
  Sender: Public
  Company Number: None

PATIENT
  Age: 80 Year
  Sex: Female

DRUGS (1)
  1. SOTYKTU [Suspect]
     Active Substance: DEUCRAVACITINIB
     Indication: Psoriasis
     Dosage: OTHER QUANTITY : 1 DOSAGE;?FREQUENCY : DAILY;?
     Route: 048
     Dates: start: 202308

REACTIONS (2)
  - Hip fracture [None]
  - Therapy interrupted [None]
